FAERS Safety Report 12911611 (Version 1)
Quarter: 2016Q4

REPORT INFORMATION
  Report Type: Spontaneous
  Country: IN (occurrence: US)
  Receive Date: 20161103
  Receipt Date: 20161103
  Transmission Date: 20170207
  Serious: Yes (Other)
  Sender: FDA-Public Use
  Company Number: None

PATIENT
  Age: 80 Year
  Sex: Female
  Weight: 64 kg

DRUGS (1)
  1. ISTAMET [Suspect]
     Active Substance: METFORMIN HYDROCHLORIDE\SITAGLIPTIN PHOSPHATE
     Indication: DRUG THERAPY
     Route: 048

REACTIONS (4)
  - Eye swelling [None]
  - Lip swelling [None]
  - Dysphagia [None]
  - Oral mucosal erythema [None]

NARRATIVE: CASE EVENT DATE: 20160802
